FAERS Safety Report 11297817 (Version 1)
Quarter: 2015Q3

REPORT INFORMATION
  Report Type: Spontaneous
  Country: US (occurrence: US)
  Receive Date: 20150722
  Receipt Date: 20150722
  Transmission Date: 20151125
  Serious: No
  Sender: FDA-Public Use
  Company Number: US-ELI_LILLY_AND_COMPANY-US200912003093

PATIENT
  Age: 12 Year
  Sex: Male

DRUGS (5)
  1. HUMATROPE [Suspect]
     Active Substance: SOMATROPIN
     Indication: GROWTH HORMONE DEFICIENCY
     Dosage: 1.8 MG, QOD
     Dates: start: 2006, end: 200912
  2. RITALIN [Concomitant]
     Active Substance: METHYLPHENIDATE HYDROCHLORIDE
     Dosage: UNK, UNKNOWN
  3. FLUOXETINE /N/A/ [Concomitant]
     Dosage: UNK, UNKNOWN
  4. HUMATROPE [Suspect]
     Active Substance: SOMATROPIN
     Dosage: 2 MG, QOD
     Dates: start: 2006, end: 200912
  5. HUMATROPE [Suspect]
     Active Substance: SOMATROPIN
     Dosage: 2 MG, DAILY (1/D)
     Dates: start: 200912

REACTIONS (4)
  - Intentional device misuse [Unknown]
  - Blood testosterone decreased [Not Recovered/Not Resolved]
  - Drug ineffective [Not Recovered/Not Resolved]
  - Incorrect dose administered [Unknown]

NARRATIVE: CASE EVENT DATE: 200812
